FAERS Safety Report 26090306 (Version 1)
Quarter: 2025Q4

REPORT INFORMATION
  Report Type: Report from Study
  Country: CA (occurrence: CA)
  Receive Date: 20251126
  Receipt Date: 20251126
  Transmission Date: 20260117
  Serious: Yes (Hospitalization)
  Sender: BOEHRINGER INGELHEIM
  Company Number: CA-BoehringerIngelheim-2024-BI-017013

PATIENT
  Age: 90 Year
  Sex: Male

DRUGS (2)
  1. OFEV [Suspect]
     Active Substance: NINTEDANIB
     Indication: Interstitial lung disease
     Dates: start: 20240205
  2. OFEV [Suspect]
     Active Substance: NINTEDANIB
     Dosage: 100 MG

REACTIONS (12)
  - Heart valve replacement [Unknown]
  - Dehydration [Recovered/Resolved]
  - Bradycardia [Unknown]
  - Hypotension [Recovered/Resolved]
  - Post procedural complication [Unknown]
  - Dizziness [Unknown]
  - Fatigue [Not Recovered/Not Resolved]
  - FEV1/FVC ratio decreased [Unknown]
  - Diarrhoea [Not Recovered/Not Resolved]
  - Cough [Not Recovered/Not Resolved]
  - Gastrointestinal disorder [Unknown]
  - Inappropriate schedule of product administration [Unknown]

NARRATIVE: CASE EVENT DATE: 20240301
